FAERS Safety Report 8404530-7 (Version None)
Quarter: 2012Q2

REPORT INFORMATION
  Report Type: 
  Country: None (occurrence: None)
  Receive Date: 20120601
  Receipt Date: 20120523
  Transmission Date: 20120825
  Serious: Yes (Other)
  Sender: FDA-Public Use
  Company Number: JP-VERTEX PHARMACEUTICALS INC.-AE-2012-007909

PATIENT
  Age: 58 Year
  Sex: Male

DRUGS (17)
  1. TELAVIC (TELAPREVIR) [Suspect]
     Route: 048
     Dates: start: 20120327, end: 20120411
  2. TELAVIC (TELAPREVIR) [Suspect]
     Route: 048
     Dates: start: 20120504, end: 20120506
  3. TELAVIC (TELAPREVIR) [Suspect]
     Route: 048
     Dates: start: 20120507, end: 20120512
  4. MUCOSTA [Concomitant]
     Route: 048
     Dates: start: 20120221, end: 20120318
  5. TELAVIC (TELAPREVIR) [Suspect]
     Route: 048
     Dates: start: 20120326, end: 20120326
  6. REBETOL [Concomitant]
     Indication: HEPATITIS C
     Route: 048
     Dates: start: 20120221, end: 20120312
  7. REBETOL [Concomitant]
     Route: 048
     Dates: start: 20120313, end: 20120325
  8. TELAVIC (TELAPREVIR) [Suspect]
     Indication: HEPATITIS C
     Route: 048
     Dates: start: 20120221, end: 20120325
  9. LOXOPROFEN [Concomitant]
     Route: 048
     Dates: start: 20120221, end: 20120318
  10. TELAVIC (TELAPREVIR) [Suspect]
     Route: 048
     Dates: start: 20120514, end: 20120514
  11. REBETOL [Concomitant]
     Route: 048
     Dates: start: 20120326, end: 20120507
  12. LOSARTAN POTASSIUM [Concomitant]
     Route: 048
     Dates: start: 20120221, end: 20120320
  13. TELAVIC (TELAPREVIR) [Suspect]
     Route: 048
     Dates: start: 20120513, end: 20120513
  14. PEG-INTRON [Concomitant]
     Indication: HEPATITIS C
     Route: 051
     Dates: start: 20120221
  15. TELAVIC (TELAPREVIR) [Suspect]
     Route: 048
     Dates: start: 20120412, end: 20120412
  16. TELAVIC (TELAPREVIR) [Suspect]
     Route: 048
     Dates: start: 20120413, end: 20120503
  17. REBETOL [Concomitant]
     Route: 048
     Dates: start: 20120508

REACTIONS (1)
  - WHITE BLOOD CELL COUNT DECREASED [None]
